FAERS Safety Report 8250211-2 (Version None)
Quarter: 2012Q2

REPORT INFORMATION
  Report Type: 
  Country: None (occurrence: None)
  Receive Date: 20120402
  Receipt Date: 20120326
  Transmission Date: 20120825
  Serious: Yes (Other)
  Sender: FDA-Public Use
  Company Number: PHHY2012JP020321

PATIENT
  Weight: 0.782 kg

DRUGS (1)
  1. HYDRALAZINE HYDROCHLORIDE [Suspect]
     Route: 064

REACTIONS (4)
  - CAESAREAN SECTION [None]
  - LOW BIRTH WEIGHT BABY [None]
  - FOETAL EXPOSURE DURING PREGNANCY [None]
  - PREMATURE BABY [None]
